FAERS Safety Report 7675148-9 (Version None)
Quarter: 2011Q3

REPORT INFORMATION
  Report Type: 
  Country: None (occurrence: None)
  Receive Date: 20110810
  Receipt Date: 20110729
  Transmission Date: 20111222
  Serious: Yes (Other)
  Sender: FDA-Public Use
  Company Number: CA-JNJFOC-20110801409

PATIENT
  Weight: 43.6 kg

DRUGS (1)
  1. REMICADE [Suspect]
     Indication: CROHN'S DISEASE
     Dosage: 100MG/VIAL
     Route: 042

REACTIONS (1)
  - SUPRAVENTRICULAR TACHYCARDIA [None]
